FAERS Safety Report 5596367-1 (Version None)
Quarter: 2007Q4

REPORT INFORMATION
  Report Type: 
  Country: None (occurrence: None)
  Receive Date: 20071219
  Receipt Date: 20070822
  Transmission Date: 20080405
  Serious: Yes (Death, Hospitalization)
  Sender: FDA-Public Use
  Company Number: PHEH2007US11127

PATIENT
  Age: 52 Year
  Sex: Male

DRUGS (5)
  1. AREDIA [Suspect]
     Indication: HYPERCALCAEMIA OF MALIGNANCY
     Dosage: 90 MG Q36 HOURS
  2. GLYBURIDE [Concomitant]
  3. METFORMIN HCL [Concomitant]
  4. PRINIVIL [Concomitant]
  5. SIMVASTATIN [Concomitant]

REACTIONS (2)
  - MULTIPLE MYELOMA [None]
  - OVERDOSE [None]
